FAERS Safety Report 8397989-5 (Version None)
Quarter: 2012Q2

REPORT INFORMATION
  Report Type: 
  Country: None (occurrence: None)
  Receive Date: 20120531
  Receipt Date: 20120530
  Transmission Date: 20120825
  Serious: Yes (Death)
  Sender: FDA-Public Use
  Company Number: PHEH2012US010060

PATIENT
  Sex: Male

DRUGS (6)
  1. CALCIUM [Concomitant]
  2. PREDNISONE TAB [Concomitant]
  3. ZOMETA [Suspect]
     Dosage: UNK UKN, UNK
  4. PROTONIX [Concomitant]
  5. OXYCODONE HCL [Concomitant]
  6. ZOLOFT [Concomitant]

REACTIONS (2)
  - NEOPLASM MALIGNANT [None]
  - NEOPLASM PROGRESSION [None]
